FAERS Safety Report 23692431 (Version 1)
Quarter: 2024Q1

REPORT INFORMATION
  Report Type: Spontaneous
  Country: US (occurrence: None)
  Receive Date: 20240330
  Receipt Date: 20240330
  Transmission Date: 20240410
  Serious: Yes (Hospitalization, Disabling, Other)
  Sender: FDA-Public Use
  Company Number: None

PATIENT
  Age: 82 Year
  Sex: Female
  Weight: 36 kg

DRUGS (12)
  1. LEVOFLOXACIN [Suspect]
     Active Substance: LEVOFLOXACIN
     Indication: Pneumonia
     Dosage: OTHER QUANTITY : 7 TABLET(S);?
     Route: 048
     Dates: start: 20240106, end: 20240112
  2. LOPERMIDE [Concomitant]
  3. aspirin [Concomitant]
  4. Pravastain [Concomitant]
  5. LISINOPRIL [Concomitant]
  6. pantoprazle [Concomitant]
  7. Revestatratmine [Concomitant]
  8. Hydrochlorothizaide [Concomitant]
  9. Viamin C [Concomitant]
  10. Caclcium [Concomitant]
  11. IRON [Concomitant]
  12. VITAMIN D [Concomitant]
     Active Substance: VITAMIN D NOS

REACTIONS (12)
  - Pleural effusion [None]
  - Pulmonary mass [None]
  - Fluid retention [None]
  - Neuropathy peripheral [None]
  - Hypoaesthesia [None]
  - Pain in extremity [None]
  - Tendon pain [None]
  - Abnormal faeces [None]
  - Urine analysis abnormal [None]
  - Atrial fibrillation [None]
  - Fall [None]
  - Femur fracture [None]

NARRATIVE: CASE EVENT DATE: 20240310
